FAERS Safety Report 9729422 (Version 1)
Quarter: 2013Q4

REPORT INFORMATION
  Report Type: Spontaneous
  Country: US (occurrence: US)
  Receive Date: 20131204
  Receipt Date: 20131204
  Transmission Date: 20140711
  Serious: Yes (Hospitalization)
  Sender: FDA-Public Use
  Company Number: US-GILEAD-2009-0021254

PATIENT
  Age: 71 Year
  Sex: Male
  Weight: 105.23 kg

DRUGS (13)
  1. LETAIRIS [Suspect]
     Indication: PULMONARY ARTERIAL HYPERTENSION
     Route: 048
     Dates: start: 20090320, end: 20090323
  2. DIGOXIN [Concomitant]
  3. DOXAZOSIN [Concomitant]
  4. ALLOPURINOL [Concomitant]
  5. WARFARIN [Concomitant]
  6. DEMEDEX [Concomitant]
  7. INDAPAMIDE [Concomitant]
  8. ADVAIR [Concomitant]
  9. SINGULAIR [Concomitant]
  10. GLYBURIDE [Concomitant]
  11. KLOR-CON [Concomitant]
  12. MULTIVITAMIN [Concomitant]
  13. CALCIUM [Concomitant]

REACTIONS (1)
  - Dyspnoea [Recovered/Resolved]
